FAERS Safety Report 10996496 (Version 4)
Quarter: 2015Q3

REPORT INFORMATION
  Report Type: Spontaneous
  Country: US (occurrence: US)
  Receive Date: 20150408
  Receipt Date: 20150710
  Transmission Date: 20151125
  Serious: No
  Sender: FDA-Public Use
  Company Number: US-ASTRAZENECA-2015SE30476

PATIENT
  Age: 81 Year
  Sex: Female
  Weight: 86.6 kg

DRUGS (28)
  1. PRILOSEC [Suspect]
     Active Substance: OMEPRAZOLE MAGNESIUM
     Route: 048
  2. BENADRYL [Suspect]
     Active Substance: DIPHENHYDRAMINE HYDROCHLORIDE
     Indication: RASH
     Dosage: TWICE DAILY, DIVIDED INTO FOUR DOSES INSTEAD OF TWO
     Route: 048
     Dates: start: 201503
  3. PLAVIX [Suspect]
     Active Substance: CLOPIDOGREL BISULFATE
     Route: 065
  4. LASIX [Concomitant]
     Active Substance: FUROSEMIDE
     Indication: SWELLING
     Route: 048
     Dates: start: 201502
  5. HUMALOG [Concomitant]
     Active Substance: INSULIN LISPRO
     Indication: BLOOD GLUCOSE ABNORMAL
     Route: 058
  6. ASPIRIN. [Concomitant]
     Active Substance: ASPIRIN
     Indication: PAIN
     Route: 048
     Dates: start: 2005, end: 20150321
  7. ASPIRIN. [Concomitant]
     Active Substance: ASPIRIN
     Indication: PAIN
     Route: 048
     Dates: start: 2005, end: 20150321
  8. BRILINTA [Suspect]
     Active Substance: TICAGRELOR
     Indication: ANTIPLATELET THERAPY
     Route: 048
     Dates: start: 20150321
  9. HUMALOG [Concomitant]
     Active Substance: INSULIN LISPRO
     Indication: BLOOD GLUCOSE ABNORMAL
     Dosage: FOUR TIMES A DAY
     Route: 030
     Dates: start: 2009
  10. SYSTANE EYE DROP [Concomitant]
     Indication: DRY EYE
     Route: 047
     Dates: start: 2012
  11. SYSTANE EYE DROP [Concomitant]
     Indication: EYE PRURITUS
     Route: 031
  12. HUMALOG [Concomitant]
     Active Substance: INSULIN LISPRO
     Indication: DIABETES MELLITUS
     Dosage: AS NEEDED, SLIDING SCALE BETWEEN 4 AND 8 UNITS
     Route: 030
     Dates: start: 2009
  13. NITROGLYCERIN. [Concomitant]
     Active Substance: NITROGLYCERIN
     Indication: CHEST DISCOMFORT
     Route: 060
     Dates: start: 2009
  14. SYSTANE EYE DROP [Concomitant]
     Indication: DRY EYE
     Route: 031
  15. BRILINTA [Suspect]
     Active Substance: TICAGRELOR
     Indication: STENT PLACEMENT
     Route: 048
     Dates: start: 20150321
  16. BRILINTA [Suspect]
     Active Substance: TICAGRELOR
     Indication: ACUTE CORONARY SYNDROME
     Route: 048
     Dates: start: 20150321
  17. HUMALOG [Concomitant]
     Active Substance: INSULIN LISPRO
     Indication: DIABETES MELLITUS
     Dosage: FOUR TIMES A DAY
     Route: 030
     Dates: start: 2009
  18. ASPIRIN. [Concomitant]
     Active Substance: ASPIRIN
     Indication: ADJUVANT THERAPY
     Route: 048
     Dates: start: 2005, end: 20150321
  19. ASPIRIN. [Concomitant]
     Active Substance: ASPIRIN
     Indication: ARTHRITIS
     Route: 048
     Dates: start: 2005, end: 20150321
  20. ASPIRIN. [Concomitant]
     Active Substance: ASPIRIN
     Indication: PAIN
     Route: 048
     Dates: start: 20150321
  21. HUMALOG [Concomitant]
     Active Substance: INSULIN LISPRO
     Indication: BLOOD GLUCOSE ABNORMAL
     Dosage: AS NEEDED, SLIDING SCALE BETWEEN 4 AND 8 UNITS
     Route: 030
     Dates: start: 2009
  22. HUMALOG [Concomitant]
     Active Substance: INSULIN LISPRO
     Indication: DIABETES MELLITUS
     Route: 058
  23. ASPIRIN. [Concomitant]
     Active Substance: ASPIRIN
     Indication: PAIN
     Route: 048
     Dates: start: 20150321
  24. ASPIRIN. [Concomitant]
     Active Substance: ASPIRIN
     Indication: ARTHRITIS
     Route: 048
     Dates: start: 20150321
  25. SYSTANE EYE DROP [Concomitant]
     Indication: EYE PRURITUS
     Route: 047
     Dates: start: 2012
  26. ASPIRIN. [Concomitant]
     Active Substance: ASPIRIN
     Indication: ADJUVANT THERAPY
     Route: 048
     Dates: start: 20150321
  27. LISINOPRIL. [Suspect]
     Active Substance: LISINOPRIL
     Indication: HYPERTENSION
     Route: 048
  28. PEPCID [Concomitant]
     Active Substance: FAMOTIDINE
     Indication: GASTRIC ULCER
     Dosage: AT NIGHT
     Route: 048
     Dates: start: 2011

REACTIONS (40)
  - Listless [Unknown]
  - Abdominal pain upper [Unknown]
  - Skin discolouration [Unknown]
  - Chest discomfort [Unknown]
  - Headache [Unknown]
  - Pain [Unknown]
  - Breath odour [Unknown]
  - Pulse pressure increased [Unknown]
  - Middle insomnia [Unknown]
  - Hypoaesthesia [Recovered/Resolved]
  - Off label use [Not Recovered/Not Resolved]
  - Scab [Unknown]
  - Erythema [Unknown]
  - Contusion [Unknown]
  - Rash pruritic [Unknown]
  - Dysgeusia [Unknown]
  - General physical health deterioration [Unknown]
  - Feeling abnormal [Unknown]
  - Malaise [Unknown]
  - Panic attack [Unknown]
  - Blood pressure fluctuation [Unknown]
  - Thought blocking [Unknown]
  - Dyspnoea [Unknown]
  - Rash [Unknown]
  - Hyperhidrosis [Unknown]
  - Flank pain [Unknown]
  - Hot flush [Unknown]
  - Serum sickness [Recovered/Resolved]
  - Arthralgia [Recovered/Resolved]
  - Malaise [Recovered/Resolved]
  - Product use issue [Unknown]
  - Vision blurred [Unknown]
  - Abdominal pain [Unknown]
  - Pain in jaw [Unknown]
  - Asthenia [Unknown]
  - Blood pressure increased [Unknown]
  - Thinking abnormal [Unknown]
  - Epistaxis [Recovered/Resolved]
  - Abdominal discomfort [Unknown]
  - Thermal burn [Unknown]

NARRATIVE: CASE EVENT DATE: 2015
